FAERS Safety Report 8445330-1 (Version None)
Quarter: 2012Q2

REPORT INFORMATION
  Report Type: 
  Country: None (occurrence: None)
  Receive Date: 20120323
  Receipt Date: 20110929
  Transmission Date: 20120825
  Serious: Yes (Other)
  Sender: FDA-Public Use
  Company Number: 163-21880-11100020

PATIENT
  Age: 94 Year
  Sex: Male

DRUGS (7)
  1. AMIODARONE HCL [Concomitant]
  2. LOSARTAN POTASSIUM [Concomitant]
  3. REVLIMID [Suspect]
     Indication: MYELODYSPLASTIC SYNDROME
     Dosage: 5 MG, DAILY FOR 21 DAYS, PO
     Route: 048
     Dates: start: 20110915
  4. ATENOLOL [Concomitant]
  5. LEVOTHYROXINE SODIUM [Concomitant]
  6. LISINOPRIL [Concomitant]
  7. TERAZOSIN HCL [Concomitant]

REACTIONS (1)
  - ATRIAL FIBRILLATION [None]
